FAERS Safety Report 19455492 (Version 1)
Quarter: 2021Q2

REPORT INFORMATION
  Report Type: Spontaneous
  Country: US (occurrence: US)
  Receive Date: 20210623
  Receipt Date: 20210623
  Transmission Date: 20210717
  Serious: Yes (Hospitalization, Disabling)
  Sender: FDA-Public Use
  Company Number: None

PATIENT
  Age: 48 Year
  Sex: Female
  Weight: 94.5 kg

DRUGS (4)
  1. OCREVUS [Suspect]
     Active Substance: OCRELIZUMAB
     Indication: MULTIPLE SCLEROSIS
     Dates: start: 20190915, end: 20200915
  2. LORSATEN POTASSIUM [Concomitant]
  3. BACLOFEN. [Concomitant]
     Active Substance: BACLOFEN
  4. TINAZIDINE HYDROCHLORITIZIDE [Concomitant]

REACTIONS (8)
  - Pain in extremity [None]
  - Crying [None]
  - Insomnia [None]
  - White blood cell count decreased [None]
  - Infusion related reaction [None]
  - Muscle spasms [None]
  - General physical health deterioration [None]
  - Disease progression [None]

NARRATIVE: CASE EVENT DATE: 20190915
